FAERS Safety Report 5677646-6 (Version None)
Quarter: 2008Q1

REPORT INFORMATION
  Report Type: 
  Country: None (occurrence: None)
  Receive Date: 20080318
  Receipt Date: 20080305
  Transmission Date: 20080703
  Serious: Yes (Hospitalization)
  Sender: FDA-Public Use
  Company Number: TCI2008A01210

PATIENT
  Age: 52 Year
  Sex: Male

DRUGS (2)
  1. PIOGLITAZONE HCL [Suspect]
     Indication: TYPE 2 DIABETES MELLITUS
     Dosage: 15 MG (15 MG,1 IN 1 D)
     Route: 048
     Dates: start: 20070411, end: 20080228
  2. METFORMIN HCL [Suspect]
     Indication: TYPE 2 DIABETES MELLITUS
     Dosage: 500 MG/DAY, QD OR BID (2 IN 1 D)
     Route: 048
     Dates: start: 20071102, end: 20080228

REACTIONS (1)
  - ANGINA PECTORIS [None]
